FAERS Safety Report 11520678 (Version 1)
Quarter: 2015Q3

REPORT INFORMATION
  Report Type: Spontaneous
  Country: US (occurrence: None)
  Receive Date: 20150917
  Receipt Date: 20150917
  Transmission Date: 20151125
  Serious: No
  Sender: FDA-Public Use
  Company Number: None

PATIENT
  Age: 73 Year
  Sex: Female
  Weight: 58.97 kg

DRUGS (4)
  1. NEURONTIN [Concomitant]
     Active Substance: GABAPENTIN
  2. ZOLEDRONIC 5 [Concomitant]
  3. ORENCIA [Suspect]
     Active Substance: ABATACEPT
     Indication: RHEUMATOID ARTHRITIS
     Route: 058
     Dates: start: 20131230
  4. VITAMIN K [Concomitant]
     Active Substance: PHYTONADIONE

REACTIONS (6)
  - Rhinitis [None]
  - Oral herpes [None]
  - Erythema [None]
  - Feeling hot [None]
  - Blood urine present [None]
  - Oedema peripheral [None]
